FAERS Safety Report 19749841 (Version 1)
Quarter: 2021Q3

REPORT INFORMATION
  Report Type: Spontaneous
  Country: US (occurrence: US)
  Receive Date: 20210826
  Receipt Date: 20210826
  Transmission Date: 20211014
  Serious: Yes (Hospitalization, Other)
  Sender: FDA-Public Use
  Company Number: US-GLENMARK PHARMACEUTICALS-2021GMK067447

PATIENT
  Age: 35 Year
  Sex: Male

DRUGS (3)
  1. FONDAPARINUX [Suspect]
     Active Substance: FONDAPARINUX
     Indication: EMBOLISM VENOUS
     Dosage: UNK
     Route: 065
  2. SIROLIMUS. [Suspect]
     Active Substance: SIROLIMUS
     Dosage: 2.5 MILLIGRAM, BID
     Route: 065
  3. SIROLIMUS. [Suspect]
     Active Substance: SIROLIMUS
     Indication: KLIPPEL-TRENAUNAY SYNDROME
     Dosage: 1.5 MILLIGRAM, BID
     Route: 065

REACTIONS (5)
  - Pulmonary embolism [Recovered/Resolved]
  - Drug level below therapeutic [Unknown]
  - Acute kidney injury [Recovered/Resolved]
  - Pulmonary hypertension [Unknown]
  - Deep vein thrombosis [Recovered/Resolved]
